FAERS Safety Report 4511400-3 (Version None)
Quarter: 2004Q4

REPORT INFORMATION
  Report Type: 
  Country: None (occurrence: None)
  Receive Date: 20041129
  Receipt Date: 20040607
  Transmission Date: 20050328
  Serious: No
  Sender: FDA-Public Use
  Company Number: US-BRISTOL-MYERS SQUIBB COMPANY-12608253

PATIENT
  Age: 11 Year
  Sex: Male

DRUGS (3)
  1. ABILIFY [Suspect]
     Indication: PSYCHOTIC DISORDER
     Dosage: INCREASED TO 10 MG 28-APR-04; THEN DISCONTINUED 10-MAY-04
     Route: 048
     Dates: start: 20040421, end: 20040510
  2. ALBUTEROL [Concomitant]
     Dosage: SYRUP 1 TSP PRN
  3. ALBUTEROL [Concomitant]
     Dosage: 2 PUFFS PRN

REACTIONS (1)
  - HYPOTHYROIDISM [None]
